FAERS Safety Report 8214505 (Version 2)
Quarter: 2014Q1

REPORT INFORMATION
  Report Type: Spontaneous
  Country: US (occurrence: US)
  Receive Date: 20111030
  Receipt Date: 20140307
  Transmission Date: 20141002
  Serious: No
  Sender: FDA-Public Use
  Company Number: US-AMGEN-USASP2011024430

PATIENT
  Age: 44 Year
  Sex: Male

DRUGS (3)
  1. ENBREL [Suspect]
     Indication: RHEUMATOID ARTHRITIS
     Dosage: 50 MG, 2 TIMES/WK
     Route: 065
     Dates: start: 20080801
  2. ENBREL [Suspect]
     Indication: PSORIASIS
  3. ENBREL [Suspect]
     Indication: PSORIATIC ARTHROPATHY

REACTIONS (10)
  - Therapeutic response decreased [Not Recovered/Not Resolved]
  - Arthralgia [Not Recovered/Not Resolved]
  - Hair growth abnormal [Not Recovered/Not Resolved]
  - Fatigue [Not Recovered/Not Resolved]
  - Confusional state [Not Recovered/Not Resolved]
  - Pain [Not Recovered/Not Resolved]
  - Dermatitis [Not Recovered/Not Resolved]
  - Acne [Not Recovered/Not Resolved]
  - Skin plaque [Not Recovered/Not Resolved]
  - Psoriasis [Not Recovered/Not Resolved]
